FAERS Safety Report 4710564-6 (Version None)
Quarter: 2005Q3

REPORT INFORMATION
  Report Type: 
  Country: None (occurrence: None)
  Receive Date: 20050706
  Receipt Date: 20050706
  Transmission Date: 20060218
  Serious: Yes (Hospitalization)
  Sender: FDA-Public Use
  Company Number: None

PATIENT
  Age: 73 Year
  Sex: Female
  Weight: 90.7194 kg

DRUGS (2)
  1. LETROZOLE 2.5 [Suspect]
     Indication: BREAST CANCER
     Dosage: 2.5 MG PO QD
     Route: 048
     Dates: start: 20050401
  2. TARCEVA [Suspect]
     Indication: BREAST CANCER
     Dosage: 150 MG PO QD
     Route: 048
     Dates: start: 20050401

REACTIONS (4)
  - ASTHENIA [None]
  - NAUSEA [None]
  - URINARY TRACT INFECTION [None]
  - VOMITING [None]
